FAERS Safety Report 8819338 (Version 2)
Quarter: 2012Q4

REPORT INFORMATION
  Report Type: 
  Country: CN (occurrence: CN)
  Receive Date: 20121001
  Receipt Date: 20121026
  Transmission Date: 20130627
  Serious: Yes (Hospitalization)
  Sender: FDA-Public Use
  Company Number: CN-JNJFOC-20120912723

PATIENT
  Age: 26 Year
  Sex: Male

DRUGS (2)
  1. MOTRIN [Suspect]
     Route: 048
  2. MOTRIN [Suspect]
     Indication: OSTEOARTHRITIS
     Dosage: 15-20ml (300mg-400mg), 3 times a day for 1 week
     Route: 048
     Dates: start: 20090214, end: 20090221

REACTIONS (1)
  - Oedema peripheral [Recovering/Resolving]
